FAERS Safety Report 4486718-3 (Version None)
Quarter: 2004Q4

REPORT INFORMATION
  Report Type: 
  Country: None (occurrence: None)
  Receive Date: 20041021
  Receipt Date: 20041006
  Transmission Date: 20050328
  Serious: Yes (Life-Threatening, Other)
  Sender: FDA-Public Use
  Company Number: 2004237657KR

PATIENT
  Sex: 0

DRUGS (1)
  1. SOLU-CORTEF [Suspect]
     Dosage: 100 MG, SINGLE, IV
     Route: 042

REACTIONS (5)
  - BLOOD PRESSURE SYSTOLIC DECREASED [None]
  - DYSPNOEA [None]
  - FACE OEDEMA [None]
  - PERIORBITAL OEDEMA [None]
  - SHOCK [None]
